FAERS Safety Report 8065099-2 (Version None)
Quarter: 2012Q1

REPORT INFORMATION
  Report Type: 
  Country: None (occurrence: None)
  Receive Date: 20120117
  Receipt Date: 20120108
  Transmission Date: 20120608
  Serious: Yes (Other)
  Sender: FDA-Public Use
  Company Number: ACO_28764_2012

PATIENT
  Age: 68 Year
  Sex: Female
  Weight: 86.2 kg

DRUGS (3)
  1. AMPYRA [Suspect]
     Indication: GAIT DISTURBANCE
     Dosage: 10 MG, BID, ORAL
     Route: 048
     Dates: start: 20110101, end: 20111201
  2. VITAMINS NOS [Concomitant]
  3. NALTREXONE [Concomitant]

REACTIONS (2)
  - NERVE COMPRESSION [None]
  - PAIN IN EXTREMITY [None]
